FAERS Safety Report 12933888 (Version 2)
Quarter: 2016Q4

REPORT INFORMATION
  Report Type: Report from Study
  Country: MX (occurrence: MX)
  Receive Date: 20161111
  Receipt Date: 20161209
  Transmission Date: 20170207
  Serious: Yes (Other)
  Sender: FDA-Public Use
  Company Number: PHHY2016MX106897

PATIENT
  Sex: Female
  Weight: 22 kg

DRUGS (4)
  1. RITALINE [Suspect]
     Active Substance: METHYLPHENIDATE HYDROCHLORIDE
     Indication: ATTENTION DEFICIT/HYPERACTIVITY DISORDER
     Dosage: 1 DF (10 MG), QD (HALF IN THE MORNING, HALF AT NIGHT)
     Route: 065
     Dates: start: 201606
  2. CARBAMAZEPINE. [Suspect]
     Active Substance: CARBAMAZEPINE
     Indication: ATTENTION DEFICIT/HYPERACTIVITY DISORDER
     Dosage: 1 DF, BID (HALF IN MORNING, HALF AT NIGHT), UNK
     Route: 048
     Dates: start: 201504, end: 201607
  3. MAG.VALPROATE [Concomitant]
     Indication: CEREBRAL DISORDER
     Dosage: 10 IN THE MORNING AND IN THE AFTERNOON
     Route: 048
     Dates: start: 201604
  4. SERTRALINE [Concomitant]
     Active Substance: SERTRALINE HYDROCHLORIDE
     Indication: DEPRESSION
     Dosage: 0.5 DF, IN THE MORNING
     Route: 048
     Dates: start: 201504, end: 201611

REACTIONS (7)
  - Drug prescribing error [Unknown]
  - Epilepsy [Unknown]
  - Defiant behaviour [Not Recovered/Not Resolved]
  - Product use issue [Unknown]
  - Aggression [Not Recovered/Not Resolved]
  - Drug ineffective [Not Recovered/Not Resolved]
  - Wrong technique in product usage process [Unknown]
